FAERS Safety Report 19212467 (Version 1)
Quarter: 2021Q2

REPORT INFORMATION
  Report Type: Spontaneous
  Country: FR (occurrence: FR)
  Receive Date: 20210504
  Receipt Date: 20210504
  Transmission Date: 20210717
  Serious: Yes (Hospitalization)
  Sender: FDA-Public Use
  Company Number: FR-INDIVIOR US-INDV-129492-2021

PATIENT

DRUGS (1)
  1. SUBUTEX [Suspect]
     Active Substance: BUPRENORPHINE HYDROCHLORIDE
     Indication: DRUG ABUSE
     Dosage: 8 MILLIGRAM, QD
     Route: 030

REACTIONS (4)
  - Scar excision [Not Recovered/Not Resolved]
  - Administration site abscess [Recovering/Resolving]
  - Drug abuse [Not Recovered/Not Resolved]
  - Intentional product use issue [Unknown]

NARRATIVE: CASE EVENT DATE: 20210401
